FAERS Safety Report 14601904 (Version 5)
Quarter: 2018Q2

REPORT INFORMATION
  Report Type: Report from Study
  Country: US (occurrence: US)
  Receive Date: 20180306
  Receipt Date: 20180531
  Transmission Date: 20180711
  Serious: Yes (Other)
  Sender: FDA-Public Use
  Company Number: US-ROCHE-2077429

PATIENT
  Age: 63 Year
  Sex: Female
  Weight: 72.64 kg

DRUGS (5)
  1. RITUXAN [Suspect]
     Active Substance: RITUXIMAB
     Indication: MYASTHENIA GRAVIS
     Dosage: 4 WEEKS (EVERY MONTH 2 DOSES)
     Route: 042
     Dates: start: 20180112
  2. RITUXAN [Suspect]
     Active Substance: RITUXIMAB
     Indication: BENIGN NEOPLASM OF THYMUS
     Dosage: DAY 1 AND DAY 15
     Route: 042
  3. RITUXAN [Suspect]
     Active Substance: RITUXIMAB
     Indication: IMMUNOLOGY TEST
  4. IMMUNOGLOBULIN IV [Concomitant]
     Active Substance: HUMAN IMMUNOGLOBULIN G
     Route: 042
  5. RITUXAN [Suspect]
     Active Substance: RITUXIMAB
     Indication: MULTIPLE SCLEROSIS
     Route: 042
     Dates: start: 20180112, end: 20180316

REACTIONS (12)
  - Intentional product use issue [Unknown]
  - Ill-defined disorder [Unknown]
  - Frustration tolerance decreased [Unknown]
  - Malaise [Unknown]
  - Infection [Unknown]
  - Myasthenia gravis [Unknown]
  - Nasopharyngitis [Unknown]
  - Respiratory tract infection [Recovered/Resolved]
  - Off label use [Unknown]
  - Drug ineffective [Unknown]
  - Blindness [Unknown]
  - Eye discharge [Unknown]

NARRATIVE: CASE EVENT DATE: 20180501
